FAERS Safety Report 8328854-7 (Version None)
Quarter: 2012Q2

REPORT INFORMATION
  Report Type: 
  Country: None (occurrence: None)
  Receive Date: 20120502
  Receipt Date: 20120424
  Transmission Date: 20120825
  Serious: Yes (Other)
  Sender: FDA-Public Use
  Company Number: JP-VERTEX PHARMACEUTICALS INC.-AE-2012-003964

PATIENT
  Age: 63 Year
  Sex: Male

DRUGS (7)
  1. TELAVIC (TELAPREVIR) [Suspect]
     Indication: HEPATITIS C
     Route: 048
     Dates: start: 20120127
  2. REBETOL [Concomitant]
     Indication: HEPATITIS C
     Route: 048
     Dates: start: 20120127, end: 20120209
  3. REBETOL [Concomitant]
     Route: 048
     Dates: start: 20120210, end: 20120308
  4. MOBIC [Concomitant]
     Route: 048
     Dates: start: 20120210
  5. REBETOL [Concomitant]
     Route: 048
     Dates: start: 20120309
  6. PEGINTERFERON ALFA-2B [Concomitant]
     Indication: HEPATITIS C
     Route: 051
     Dates: start: 20120127
  7. ACETAMINOPHEN [Concomitant]
     Route: 048
     Dates: start: 20120127

REACTIONS (1)
  - LOSS OF CONSCIOUSNESS [None]
